FAERS Safety Report 8011429-7 (Version None)
Quarter: 2011Q4

REPORT INFORMATION
  Report Type: 
  Country: None (occurrence: None)
  Receive Date: 20111228
  Receipt Date: 20111222
  Transmission Date: 20120403
  Serious: No
  Sender: FDA-Public Use
  Company Number: US-PFIZER INC-2011312171

PATIENT
  Sex: Female

DRUGS (2)
  1. CYMBALTA [Suspect]
     Indication: NEURALGIA
     Dosage: UNK, 1X/DAY
     Dates: start: 20111221
  2. FLECTOR [Suspect]
     Indication: NEURALGIA
     Dosage: UNK
     Dates: start: 20111221

REACTIONS (1)
  - NAUSEA [None]
